FAERS Safety Report 10533424 (Version 1)
Quarter: 2014Q4

REPORT INFORMATION
  Report Type: Spontaneous
  Country: US (occurrence: US)
  Receive Date: 20141022
  Receipt Date: 20141022
  Transmission Date: 20150529
  Serious: No
  Sender: FDA-Public Use
  Company Number: US-PFIZER INC-2014287680

PATIENT
  Age: 29 Year
  Sex: Female
  Weight: 59 kg

DRUGS (1)
  1. ADVIL CONGESTION RELIEF [Suspect]
     Active Substance: IBUPROFEN\PHENYLEPHRINE HYDROCHLORIDE
     Indication: NASAL CONGESTION
     Dosage: ONE TABLET (IBUPROFEN 200MG / PHENYLEPHRINE 10MG), EVERY 4 HOURS
     Dates: start: 20141014, end: 201410

REACTIONS (4)
  - Skin irritation [Recovering/Resolving]
  - Pain of skin [Recovering/Resolving]
  - Rash [Recovering/Resolving]
  - Skin induration [Recovering/Resolving]

NARRATIVE: CASE EVENT DATE: 20141014
